FAERS Safety Report 21785124 (Version 2)
Quarter: 2025Q4

REPORT INFORMATION
  Report Type: Spontaneous
  Country: EU (occurrence: EU)
  Receive Date: 20221227
  Receipt Date: 20251209
  Transmission Date: 20260118
  Serious: Yes (Other)
  Sender: MYLAN
  Company Number: EU-BAXTER-2022BAX022573

PATIENT
  Age: 47 Year
  Sex: Female

DRUGS (20)
  1. TAMOXIFEN [Suspect]
     Active Substance: TAMOXIFEN
     Indication: Adjuvant therapy
     Dosage: UNK
  2. TAMOXIFEN [Suspect]
     Active Substance: TAMOXIFEN
     Indication: Hormone receptor positive HER2 negative breast cancer
     Dosage: UNK
     Route: 065
  3. TAMOXIFEN [Suspect]
     Active Substance: TAMOXIFEN
     Dosage: UNK
     Route: 065
  4. TAMOXIFEN [Suspect]
     Active Substance: TAMOXIFEN
     Dosage: UNK
  5. EPIRUBICIN [Suspect]
     Active Substance: EPIRUBICIN
     Indication: Hormone receptor positive HER2 negative breast cancer
     Dosage: DOSE DENSITY THERAPY REGIMEN OF 4 CYCLES,BIWEEKLY
  6. EPIRUBICIN [Suspect]
     Active Substance: EPIRUBICIN
     Dosage: DOSE DENSITY THERAPY REGIMEN OF 4 CYCLES,BIWEEKLY
     Route: 065
  7. EPIRUBICIN [Suspect]
     Active Substance: EPIRUBICIN
     Dosage: DOSE DENSITY THERAPY REGIMEN OF 4 CYCLES,BIWEEKLY
     Route: 065
  8. EPIRUBICIN [Suspect]
     Active Substance: EPIRUBICIN
     Dosage: DOSE DENSITY THERAPY REGIMEN OF 4 CYCLES,BIWEEKLY
  9. ANASTROZOLE [Suspect]
     Active Substance: ANASTROZOLE
     Indication: Hormone receptor positive HER2 negative breast cancer
     Dosage: UNK
  10. ANASTROZOLE [Suspect]
     Active Substance: ANASTROZOLE
     Dosage: UNK
     Route: 065
  11. ANASTROZOLE [Suspect]
     Active Substance: ANASTROZOLE
     Dosage: UNK
     Route: 065
  12. ANASTROZOLE [Suspect]
     Active Substance: ANASTROZOLE
     Dosage: UNK
  13. DOCETAXEL [Suspect]
     Active Substance: DOCETAXEL
     Indication: Hormone receptor positive HER2 negative breast cancer
     Dosage: FOLLOWED BY 4 CYCLES, BI WEEKLY
  14. DOCETAXEL [Suspect]
     Active Substance: DOCETAXEL
     Dosage: FOLLOWED BY 4 CYCLES, BI WEEKLY
     Route: 065
  15. DOCETAXEL [Suspect]
     Active Substance: DOCETAXEL
     Dosage: FOLLOWED BY 4 CYCLES, BI WEEKLY
     Route: 065
  16. DOCETAXEL [Suspect]
     Active Substance: DOCETAXEL
     Dosage: FOLLOWED BY 4 CYCLES, BI WEEKLY
  17. CYCLOPHOSPHAMIDE [Suspect]
     Active Substance: CYCLOPHOSPHAMIDE
     Indication: Hormone receptor positive HER2 negative breast cancer
     Dosage: DOSE DENSITY THERAPY REGIMEN OF 4 CYCLES,BIWEEKLY
  18. CYCLOPHOSPHAMIDE [Suspect]
     Active Substance: CYCLOPHOSPHAMIDE
     Dosage: DOSE DENSITY THERAPY REGIMEN OF 4 CYCLES,BIWEEKLY
     Route: 065
  19. CYCLOPHOSPHAMIDE [Suspect]
     Active Substance: CYCLOPHOSPHAMIDE
     Dosage: DOSE DENSITY THERAPY REGIMEN OF 4 CYCLES,BIWEEKLY
     Route: 065
  20. CYCLOPHOSPHAMIDE [Suspect]
     Active Substance: CYCLOPHOSPHAMIDE
     Dosage: DOSE DENSITY THERAPY REGIMEN OF 4 CYCLES,BIWEEKLY

REACTIONS (2)
  - Metastases to bone [Unknown]
  - Spinal pain [Unknown]
